FAERS Safety Report 25205478 (Version 2)
Quarter: 2025Q2

REPORT INFORMATION
  Report Type: Report from Study
  Country: US (occurrence: US)
  Receive Date: 20250417
  Receipt Date: 20250418
  Transmission Date: 20250716
  Serious: No
  Sender: BRISTOL-MYERS SQUIBB COMPANY
  Company Number: US-BRISTOL-MYERS SQUIBB COMPANY-2025-056679

PATIENT
  Age: 78 Year
  Sex: Female
  Weight: 67.13 kg

DRUGS (3)
  1. ELIQUIS [Suspect]
     Active Substance: APIXABAN
     Indication: Atrial fibrillation
     Route: 048
     Dates: start: 202402
  2. METOPROLOL [Suspect]
     Active Substance: METOPROLOL
     Indication: Product used for unknown indication
  3. LORAZEPAM [Concomitant]
     Active Substance: LORAZEPAM
     Indication: Feeling abnormal

REACTIONS (6)
  - Anxiety [Unknown]
  - Malaise [Unknown]
  - Skin pressure mark [Unknown]
  - Dizziness [Unknown]
  - Dyspnoea [Unknown]
  - Memory impairment [Unknown]
